FAERS Safety Report 9320175 (Version 2)
Quarter: 2013Q2

REPORT INFORMATION
  Report Type: Spontaneous
  Country: US (occurrence: US)
  Receive Date: 20130530
  Receipt Date: 20130628
  Transmission Date: 20140414
  Serious: No
  Sender: FDA-Public Use
  Company Number: US-ASTRAZENECA-2013SE35510

PATIENT
  Age: 70 Year
  Sex: Female
  Weight: 77.1 kg

DRUGS (6)
  1. SYMBICORT PMDI [Suspect]
     Indication: CHRONIC OBSTRUCTIVE PULMONARY DISEASE
     Dosage: 160 MCG 2 PUFFS DAILY
     Route: 055
  2. SYMBICORT PMDI [Suspect]
     Indication: CHRONIC OBSTRUCTIVE PULMONARY DISEASE
     Dosage: 160 MCG/ 4.5 MCG, 2 PUFFS, BID
     Route: 055
  3. SPIRIVA [Concomitant]
     Indication: CHRONIC OBSTRUCTIVE PULMONARY DISEASE
     Route: 055
  4. MULTIVITAMIN [Concomitant]
     Dosage: DAILY
     Route: 048
  5. B VITAMIN [Concomitant]
     Dosage: DAILY
     Route: 048
  6. PREMPRO [Concomitant]
     Dosage: LOWEST AVAILABLE DOSE QOD
     Route: 048
     Dates: start: 1979

REACTIONS (4)
  - Dyspnoea [Unknown]
  - Intervertebral disc compression [Unknown]
  - Off label use [Unknown]
  - Drug effect decreased [Unknown]
